FAERS Safety Report 9028352 (Version 1)
Quarter: 2013Q1

REPORT INFORMATION
  Report Type: Spontaneous
  Country: US (occurrence: US)
  Receive Date: 20130124
  Receipt Date: 20130124
  Transmission Date: 20140127
  Serious: No
  Sender: FDA-Public Use
  Company Number: US-BAUSCH-BL-2012-001418

PATIENT
  Sex: Female

DRUGS (1)
  1. ALAWAY [Suspect]
     Indication: OCULAR HYPERAEMIA
     Dosage: ONE TIME
     Route: 047
     Dates: start: 20121007, end: 20121007

REACTIONS (2)
  - Condition aggravated [Unknown]
  - Ocular hyperaemia [Unknown]
